FAERS Safety Report 7888164-9 (Version None)
Quarter: 2011Q4

REPORT INFORMATION
  Report Type: 
  Country: None (occurrence: None)
  Receive Date: 20111103
  Receipt Date: 20111024
  Transmission Date: 20120403
  Serious: No
  Sender: FDA-Public Use
  Company Number: US-B.I. PHARMACEUTICALS,INC./RIDGEFIELD-2011-BP-24790BP

PATIENT
  Age: 78 Year
  Sex: Female

DRUGS (3)
  1. CARDIZEM [Concomitant]
     Indication: ATRIAL FIBRILLATION
     Dosage: 240 MG
     Route: 048
     Dates: start: 20110405
  2. ACTONEL [Concomitant]
     Indication: ARTHRITIS
  3. PRADAXA [Suspect]
     Indication: ATRIAL FIBRILLATION
     Dosage: 300 MG
     Route: 048
     Dates: start: 20110819

REACTIONS (5)
  - DYSGEUSIA [None]
  - SENSATION OF FOREIGN BODY [None]
  - DIZZINESS [None]
  - NAUSEA [None]
  - DYSPEPSIA [None]
